FAERS Safety Report 12423378 (Version 1)
Quarter: 2016Q2

REPORT INFORMATION
  Report Type: Spontaneous
  Country: US (occurrence: None)
  Receive Date: 20160531
  Receipt Date: 20160531
  Transmission Date: 20160815
  Serious: Yes (Other)
  Sender: FDA-Public Use
  Company Number: None

PATIENT
  Age: 65 Year
  Sex: Male
  Weight: 127.01 kg

DRUGS (16)
  1. FLAX SEED [Concomitant]
     Active Substance: FLAX SEED
  2. PRILOSEC (OMEPRAZOLE) [Concomitant]
     Active Substance: OMEPRAZOLE MAGNESIUM
  3. VITAMIN C W/ ROSE HIPS [Concomitant]
  4. TAMSULOSIN, 0.4 MG MYLAN [Suspect]
     Active Substance: TAMSULOSIN
     Indication: BENIGN PROSTATIC HYPERPLASIA
     Dosage: 9 CAPSULE(S) ONCE A DAY TAKEN BY MOUTH
     Route: 048
     Dates: start: 20160518, end: 20160527
  5. TENORMIN [Concomitant]
     Active Substance: ATENOLOL
  6. ASPIRIN. [Concomitant]
     Active Substance: ASPIRIN
  7. METFORMIN (GLUCOPHAGE) [Concomitant]
  8. PAMELOR (NORTRIPTYLINE) [Concomitant]
  9. LIPITOR [Concomitant]
     Active Substance: ATORVASTATIN CALCIUM
  10. PRINIVIL (LININPRIL) [Concomitant]
  11. LYRICA [Concomitant]
     Active Substance: PREGABALIN
  12. AZULFINIDE (SULFASALAZINE) [Concomitant]
  13. ROBAXIN (METHOCARBAMOL) [Concomitant]
  14. SAW PALMETTO [Concomitant]
     Active Substance: SAW PALMETTO
  15. NUCYNTA [Concomitant]
     Active Substance: TAPENTADOL HYDROCHLORIDE
  16. ALPHA LIPOIC [Concomitant]

REACTIONS (5)
  - Toothache [None]
  - Headache [None]
  - Ear pain [None]
  - Neck pain [None]
  - Pain in jaw [None]

NARRATIVE: CASE EVENT DATE: 20160526
